FAERS Safety Report 6741615-5 (Version None)
Quarter: 2010Q2

REPORT INFORMATION
  Report Type: 
  Country: None (occurrence: None)
  Receive Date: 20100526
  Receipt Date: 20100515
  Transmission Date: 20101027
  Serious: Yes (Other)
  Sender: FDA-Public Use
  Company Number: US-AMGEN-QUU337492

PATIENT
  Sex: Male

DRUGS (7)
  1. ENBREL [Suspect]
     Indication: PSORIASIS
     Route: 058
     Dates: start: 20080122, end: 20100415
  2. ZOLOFT [Concomitant]
  3. METHOTREXATE [Concomitant]
  4. PROPOXYPHENE [Concomitant]
  5. CLINDAMYCIN [Concomitant]
  6. XANAX [Concomitant]
  7. UNSPECIFIED MEDICATION [Concomitant]

REACTIONS (9)
  - ABASIA [None]
  - BLINDNESS UNILATERAL [None]
  - CATARACT [None]
  - ECZEMA INFECTED [None]
  - HYPOKINESIA [None]
  - MUSCULOSKELETAL STIFFNESS [None]
  - PSORIASIS [None]
  - STAPHYLOCOCCAL SKIN INFECTION [None]
  - VISION BLURRED [None]
